FAERS Safety Report 8791027 (Version 2)
Quarter: 2012Q4

REPORT INFORMATION
  Report Type: Spontaneous
  Country: US (occurrence: None)
  Receive Date: 20120910
  Receipt Date: 20121009
  Transmission Date: 20130627
  Serious: Yes (Death)
  Sender: FDA-Public Use
  Company Number: UTC-022554

PATIENT
  Age: 48 Year
  Sex: Female
  Weight: 60.9 kg

DRUGS (2)
  1. REMODULIN [Suspect]
     Indication: PRIMARY PULMONARY HYPERTENSION
     Route: 041
     Dates: start: 20120723
  2. COUMADIN (WARFARIN SODIUM) [Concomitant]

REACTIONS (3)
  - Death [None]
  - Pneumonia [None]
  - Right ventricular failure [None]
